FAERS Safety Report 14912564 (Version 6)
Quarter: 2018Q4

REPORT INFORMATION
  Report Type: Report from Study
  Country: DE (occurrence: DE)
  Receive Date: 20180518
  Receipt Date: 20181211
  Transmission Date: 20190204
  Serious: Yes (Hospitalization)
  Sender: FDA-Public Use
  Company Number: DE-ROCHE-2121572

PATIENT
  Age: 36 Year
  Sex: Female
  Weight: 100 kg

DRUGS (3)
  1. SATIVEX [Concomitant]
     Active Substance: NABIXIMOLS
     Indication: MUSCLE SPASTICITY
     Route: 048
     Dates: start: 201709
  2. OCREVUS [Suspect]
     Active Substance: OCRELIZUMAB
     Indication: SECONDARY PROGRESSIVE MULTIPLE SCLEROSIS
     Dosage: SECOND INFUSION: 09/MAY/2018
     Route: 042
     Dates: start: 20180425
  3. DRONABINOL. [Concomitant]
     Active Substance: DRONABINOL
     Dosage: 5-7 GTT (5-0-7 GTT)
     Route: 065

REACTIONS (8)
  - Cough [Recovering/Resolving]
  - Intentional product use issue [Unknown]
  - Fatigue [Not Recovered/Not Resolved]
  - Off label use [Unknown]
  - Multiple sclerosis [Recovering/Resolving]
  - Nasopharyngitis [Recovering/Resolving]
  - Headache [Recovered/Resolved]
  - Initial insomnia [Recovered/Resolved]

NARRATIVE: CASE EVENT DATE: 20180425
